FAERS Safety Report 4773364-7 (Version None)
Quarter: 2005Q3

REPORT INFORMATION
  Report Type: 
  Country: None (occurrence: None)
  Receive Date: 20050916
  Receipt Date: 20050901
  Transmission Date: 20060218
  Serious: Yes (Other)
  Sender: FDA-Public Use
  Company Number: US-2005-009438

PATIENT
  Age: 39 Year
  Sex: Female
  Weight: 65.3 kg

DRUGS (5)
  1. BETASERON [Suspect]
     Indication: RELAPSING-REMITTING MULTIPLE SCLEROSIS
     Dosage: 8 MIU, EVERY 2D, SUBCUTANEOUS
     Route: 058
     Dates: start: 20040506, end: 20050719
  2. LEXAPRO [Concomitant]
  3. PROVIGIL [Concomitant]
  4. AMTRIPTYLINE (AMITRIPTYLINE) [Concomitant]
  5. ORTHO TRI-CYCLEN [Concomitant]

REACTIONS (2)
  - HAEMOCHROMATOSIS [None]
  - HEPATIC STEATOSIS [None]
